FAERS Safety Report 22240641 (Version 2)
Quarter: 2023Q2

REPORT INFORMATION
  Report Type: Spontaneous
  Country: IT (occurrence: IT)
  Receive Date: 20230421
  Receipt Date: 20230531
  Transmission Date: 20230722
  Serious: Yes (Death, Other)
  Sender: FDA-Public Use
  Company Number: IT-SHIONOGI, INC-2023000959

PATIENT
  Age: 30 Year
  Sex: Male

DRUGS (11)
  1. FETROJA [Suspect]
     Active Substance: CEFIDEROCOL SULFATE TOSYLATE
     Indication: Evidence based treatment
     Dosage: 2 G, 6 HOUR
     Route: 065
     Dates: start: 20230405, end: 20230410
  2. FETROJA [Suspect]
     Active Substance: CEFIDEROCOL SULFATE TOSYLATE
     Indication: Testicular abscess
  3. FETROJA [Suspect]
     Active Substance: CEFIDEROCOL SULFATE TOSYLATE
     Indication: Febrile neutropenia
  4. FETROJA [Suspect]
     Active Substance: CEFIDEROCOL SULFATE TOSYLATE
     Indication: Escherichia bacteraemia
  5. FOSFOMYCIN [Concomitant]
     Active Substance: FOSFOMYCIN
     Indication: Evidence based treatment
     Dosage: 24 G, QD
     Route: 042
     Dates: start: 20230406, end: 20230410
  6. FOSFOMYCIN [Concomitant]
     Active Substance: FOSFOMYCIN
     Indication: Testicular abscess
  7. FOSFOMYCIN [Concomitant]
     Active Substance: FOSFOMYCIN
     Indication: Febrile neutropenia
  8. PIPERACILLIN [Concomitant]
     Active Substance: PIPERACILLIN
     Indication: Evidence based treatment
     Dosage: 16 G, QID
     Route: 042
     Dates: start: 20230331, end: 20230405
  9. PIPERACILLIN [Concomitant]
     Active Substance: PIPERACILLIN
     Indication: Febrile neutropenia
  10. TAZOBACTAM [Concomitant]
     Active Substance: TAZOBACTAM
     Indication: Evidence based treatment
     Dosage: 2 G, DAILY
     Route: 042
     Dates: start: 20230331, end: 20230405
  11. TAZOBACTAM [Concomitant]
     Active Substance: TAZOBACTAM
     Indication: Febrile neutropenia

REACTIONS (7)
  - Fournier^s gangrene [Fatal]
  - Pseudomonas infection [Fatal]
  - Acute respiratory failure [Unknown]
  - Septic shock [Unknown]
  - Febrile neutropenia [Unknown]
  - Drug resistance [Unknown]
  - Incorrect product administration duration [Unknown]

NARRATIVE: CASE EVENT DATE: 20230401
